FAERS Safety Report 21793964 (Version 1)
Quarter: 2022Q4

REPORT INFORMATION
  Report Type: Spontaneous
  Country: US (occurrence: None)
  Receive Date: 20221228
  Receipt Date: 20221228
  Transmission Date: 20230113
  Serious: No
  Sender: FDA-Public Use
  Company Number: None

PATIENT
  Age: 38 Year
  Sex: Female
  Weight: 83.25 kg

DRUGS (4)
  1. PAXLOVID [Suspect]
     Active Substance: NIRMATRELVIR\RITONAVIR
     Indication: COVID-19
     Dates: start: 20221216, end: 20221221
  2. Escitalopram x 10 mg [Concomitant]
  3. ALBUTEROL [Concomitant]
     Active Substance: ALBUTEROL
  4. IBUPROFEN [Concomitant]
     Active Substance: IBUPROFEN

REACTIONS (2)
  - Coronavirus test positive [None]
  - Nasal congestion [None]

NARRATIVE: CASE EVENT DATE: 20221225
